FAERS Safety Report 9450700 (Version 1)
Quarter: 2013Q3

REPORT INFORMATION
  Report Type: Spontaneous
  Country: GB (occurrence: None)
  Receive Date: 20130807
  Receipt Date: 20130807
  Transmission Date: 20140515
  Serious: Yes (Life-Threatening, Hospitalization, Disabling, Other)
  Sender: FDA-Public Use
  Company Number: 2013GMK006383

PATIENT
  Age: 57 Year
  Sex: Male
  Weight: 86.2 kg

DRUGS (1)
  1. GLEPARK (PRAMIPEXOLE) [Suspect]
     Indication: RESTLESS LEGS SYNDROME
     Route: 048
     Dates: start: 2013, end: 20130704

REACTIONS (6)
  - Acute hepatic failure [None]
  - Drug-induced liver injury [None]
  - Drug-induced liver injury [None]
  - Chronic hepatitis [None]
  - Cholelithiasis [None]
  - Cholecystitis [None]
